FAERS Safety Report 5764094-3 (Version None)
Quarter: 2008Q2

REPORT INFORMATION
  Report Type: 
  Country: None (occurrence: None)
  Receive Date: 20080609
  Receipt Date: 20080328
  Transmission Date: 20081010
  Serious: No
  Sender: FDA-Public Use
  Company Number: 002#2#2008-00179

PATIENT
  Age: 67 Year
  Sex: Female
  Weight: 68.0396 kg

DRUGS (2)
  1. NEUPRO [Suspect]
     Dosage: 2MG/24H, 1 IN 1 D, TRANSDERMAL
     Route: 062
     Dates: start: 20071001, end: 20071001
  2. NEUPRO [Suspect]
     Dosage: 2MG/24H, 1 IN 1 D, TRANSDERMAL
     Route: 062
     Dates: start: 20071001

REACTIONS (3)
  - APPLICATION SITE ERYTHEMA [None]
  - APPLICATION SITE PRURITUS [None]
  - APPLICATION SITE REACTION [None]
